FAERS Safety Report 17647231 (Version 16)
Quarter: 2023Q1

REPORT INFORMATION
  Report Type: Spontaneous
  Country: DE (occurrence: DE)
  Receive Date: 20200408
  Receipt Date: 20230309
  Transmission Date: 20230418
  Serious: Yes (Hospitalization, Other)
  Sender: FDA-Public Use
  Company Number: DE-002147023-NVSC2020DE082129

PATIENT
  Age: 81 Year
  Sex: Female
  Weight: 75 kg

DRUGS (4)
  1. LETROZOLE [Suspect]
     Active Substance: LETROZOLE
     Indication: Breast cancer metastatic
     Dosage: 2.5 MILLIGRAM, ONCE A DAY (2.5 MG, QD)
     Route: 048
     Dates: start: 20200218
  2. KISQALI [Suspect]
     Active Substance: RIBOCICLIB
     Indication: Breast cancer metastatic
     Dosage: 600 MILLIGRAM, CYCLICAL (SCHEMA 21 DAYS INTAKE THAN7 DAYS PAUSE)
     Route: 048
     Dates: start: 20200218, end: 20200524
  3. KISQALI [Suspect]
     Active Substance: RIBOCICLIB
     Dosage: 600 MILLIGRAM, ONCE A DAY, (SCHEMA 21 DAYS INTAKE THAN7 DAYS PAUSE)
     Route: 048
     Dates: start: 20200603
  4. BISOPROLOL [Concomitant]
     Active Substance: BISOPROLOL
     Indication: Hypertension
     Dosage: 2.5 MILLIGRAM, REDUCTION TO 2.5MG 0-0
     Route: 048
     Dates: start: 20220412

REACTIONS (11)
  - Tachyarrhythmia [Recovered/Resolved]
  - Malignant neoplasm progression [Unknown]
  - Breast cancer metastatic [Unknown]
  - Metastases to bone [Unknown]
  - Arrhythmia [Recovering/Resolving]
  - Electrocardiogram QT prolonged [Unknown]
  - Back pain [Unknown]
  - Fatigue [Unknown]
  - Oedema [Unknown]
  - Dyspnoea [Unknown]
  - Vertigo [Unknown]

NARRATIVE: CASE EVENT DATE: 20200311
